FAERS Safety Report 6801143-5 (Version None)
Quarter: 2010Q2

REPORT INFORMATION
  Report Type: 
  Country: None (occurrence: None)
  Receive Date: 20100629
  Receipt Date: 20100621
  Transmission Date: 20101027
  Serious: Yes (Hospitalization)
  Sender: FDA-Public Use
  Company Number: GB-PFIZER INC-2010076809

PATIENT
  Age: 61 Year
  Sex: Female
  Weight: 63 kg

DRUGS (4)
  1. ATORVASTATIN CALCIUM [Suspect]
     Dosage: 80 MG, UNK
     Route: 048
     Dates: start: 20100410, end: 20100520
  2. ACETYLSALICYLIC ACID [Concomitant]
     Dosage: 75 MG, UNK
     Route: 048
     Dates: start: 20100410
  3. BISOPROLOL [Concomitant]
     Dosage: 2.5 MG, UNK
     Route: 048
     Dates: start: 20100410
  4. CLOPIDOGREL [Concomitant]
     Dosage: 75 MG, UNK
     Route: 048
     Dates: start: 20100410

REACTIONS (6)
  - ASTHENIA [None]
  - BLOOD CREATINE PHOSPHOKINASE INCREASED [None]
  - MUSCULAR WEAKNESS [None]
  - PAIN IN EXTREMITY [None]
  - PAIN IN JAW [None]
  - RHABDOMYOLYSIS [None]
